FAERS Safety Report 7463601-2 (Version None)
Quarter: 2011Q2

REPORT INFORMATION
  Report Type: 
  Country: None (occurrence: None)
  Receive Date: 20110506
  Receipt Date: 20110504
  Transmission Date: 20111010
  Serious: Yes (Other)
  Sender: FDA-Public Use
  Company Number: CH-PFIZER INC-2011083984

PATIENT
  Age: 50 Year
  Sex: Male

DRUGS (5)
  1. NEURONTIN [Suspect]
     Indication: NEURALGIA
     Dosage: 600 MG, UNK
  2. PRADIF [Concomitant]
  3. VOLTAREN [Concomitant]
     Dosage: 100 MG, UNK
  4. DAFALGAN [Concomitant]
     Dosage: 500 MG, UNK
  5. TOLTERODINE TARTRATE [Concomitant]
     Dosage: 4 MG, UNK

REACTIONS (3)
  - CONVERSION DISORDER [None]
  - AGGRESSION [None]
  - DRUG ABUSE [None]
